FAERS Safety Report 25576491 (Version 1)
Quarter: 2025Q3

REPORT INFORMATION
  Report Type: Spontaneous
  Country: US (occurrence: None)
  Receive Date: 20250717
  Receipt Date: 20250717
  Transmission Date: 20251020
  Serious: Yes (Hospitalization)
  Sender: FDA-CTU
  Company Number: None

PATIENT
  Sex: Female

DRUGS (9)
  1. MACITENTAN\TADALAFIL [Suspect]
     Active Substance: MACITENTAN\TADALAFIL
     Indication: Pulmonary arterial hypertension
     Dosage: 10 MG/MG DAILY ORAL ?
     Route: 048
     Dates: start: 20250124
  2. TRIAMCINOLONE ACET CRM [Concomitant]
  3. REMUNITY CART W/FILL AID [Concomitant]
  4. STERILE DILUENT FOR REMODULIN [Concomitant]
     Active Substance: WATER
  5. LIDOCAINE/PRILOCAINE CRM [Concomitant]
  6. PUMP REMUNITY STARTER KIT [Concomitant]
  7. DEVICE [Concomitant]
     Active Substance: DEVICE
  8. REPLACE REMTY WTY PUMP KIT [Concomitant]
  9. REMODULIN [Suspect]
     Active Substance: TREPROSTINIL

REACTIONS (2)
  - Diarrhoea [None]
  - Headache [None]
